FAERS Safety Report 4645895-1 (Version None)
Quarter: 2005Q2

REPORT INFORMATION
  Report Type: 
  Country: None (occurrence: None)
  Receive Date: 20050427
  Receipt Date: 20040308
  Transmission Date: 20051028
  Serious: Yes (Hospitalization)
  Sender: FDA-Public Use
  Company Number: BE-JNJFOC-20040301817

PATIENT
  Age: 41 Year
  Sex: Female

DRUGS (1)
  1. PROPULSID [Suspect]

REACTIONS (2)
  - GASTROENTERITIS EOSINOPHILIC [None]
  - GASTROINTESTINAL OBSTRUCTION [None]
